FAERS Safety Report 5770834-X (Version None)
Quarter: 2008Q2

REPORT INFORMATION
  Report Type: 
  Country: None (occurrence: None)
  Receive Date: 20080613
  Receipt Date: 20080513
  Transmission Date: 20081010
  Serious: No
  Sender: FDA-Public Use
  Company Number: US-ABBOTT-08P-163-0452010-00

PATIENT
  Sex: Female
  Weight: 105.33 kg

DRUGS (8)
  1. HUMIRA [Suspect]
     Indication: PSORIASIS
     Route: 058
     Dates: start: 20080109
  2. LISINOPRIL [Concomitant]
     Indication: HYPERTENSION
     Route: 048
  3. CITALOPRAM HYDROBROMIDE [Concomitant]
     Indication: DEPRESSION
     Route: 048
  4. DIGOXIN [Concomitant]
     Indication: HEART RATE ABNORMAL
     Route: 048
  5. CYANOCOBALAMIN [Concomitant]
     Indication: VITAMIN SUPPLEMENTATION
     Route: 048
  6. FOLIC ACID [Concomitant]
     Indication: VITAMIN SUPPLEMENTATION
     Route: 048
  7. MULTI-VITAMIN [Concomitant]
     Indication: VITAMIN SUPPLEMENTATION
     Route: 048
     Dates: start: 20080101
  8. ESTROGENIC SUBSTANCE [Concomitant]
     Indication: HORMONE THERAPY
     Route: 061
     Dates: start: 20000101

REACTIONS (2)
  - DRUG INEFFECTIVE [None]
  - PSORIASIS [None]
